FAERS Safety Report 21220714 (Version 2)
Quarter: 2022Q3

REPORT INFORMATION
  Report Type: Spontaneous
  Country: FR (occurrence: FR)
  Receive Date: 20220817
  Receipt Date: 20220819
  Transmission Date: 20221026
  Serious: Yes (Hospitalization, Other)
  Sender: FDA-Public Use
  Company Number: None

PATIENT
  Age: 83 Year
  Sex: Male

DRUGS (14)
  1. TAMSULOSIN HYDROCHLORIDE [Suspect]
     Active Substance: TAMSULOSIN HYDROCHLORIDE
     Indication: Product used for unknown indication
     Dosage: 0.4 MG, ONCE DAILY (LC)
     Route: 065
  2. LERCANIDIPINE HYDROCHLORIDE [Interacting]
     Active Substance: LERCANIDIPINE HYDROCHLORIDE
     Indication: Hypertension
     Dosage: 10 MG, ONCE DAILY (LC)
     Route: 048
  3. KERLONE [Interacting]
     Active Substance: BETAXOLOL HYDROCHLORIDE
     Indication: Hypertension
     Dosage: UNK UNK, UNKNOWN FREQ. (LC)
     Route: 048
     Dates: end: 20220128
  4. ENALAPRIL MALEATE [Interacting]
     Active Substance: ENALAPRIL MALEATE
     Indication: Hypertension
     Dosage: 20 MG, ONCE DAILY (LC)
     Route: 065
     Dates: end: 20220128
  5. IRBESARTAN [Interacting]
     Active Substance: IRBESARTAN
     Indication: Hypertension
     Dosage: 300 MG, ONCE DAILY (LC)
     Route: 065
     Dates: end: 20220128
  6. PRAZOSIN [Interacting]
     Active Substance: PRAZOSIN
     Indication: Hypertension
     Dosage: 5 MG, ONCE DAILY (LC)
     Route: 048
  7. LERCANIDIPINE [Interacting]
     Active Substance: LERCANIDIPINE
     Indication: Hypertension
     Dosage: LC 10 MG
     Route: 048
  8. BETAHISTINE [Concomitant]
     Active Substance: BETAHISTINE
     Dosage: UNK
     Route: 048
  9. REPAGLINIDE [Concomitant]
     Active Substance: REPAGLINIDE
     Route: 048
  10. FLUINDIONE [Concomitant]
     Active Substance: FLUINDIONE
     Route: 048
  11. FUROSEMIDE [Concomitant]
     Active Substance: FUROSEMIDE
     Route: 048
  12. GLYCOPYRRONIUM\INDACATEROL [Concomitant]
     Active Substance: GLYCOPYRRONIUM\INDACATEROL
     Route: 055
  13. NASACORT [Concomitant]
     Active Substance: TRIAMCINOLONE ACETONIDE
     Route: 045
  14. GLIMEPIRIDE [Concomitant]
     Active Substance: GLIMEPIRIDE
     Dosage: UNK
     Route: 048

REACTIONS (10)
  - Bradycardia [Recovering/Resolving]
  - Syncope [Recovered/Resolved]
  - Cardiac failure [Recovering/Resolving]
  - Lymphadenopathy [Recovered/Resolved]
  - Pulmonary calcification [Recovered/Resolved]
  - Atrial fibrillation [Recovering/Resolving]
  - Oedema peripheral [Recovering/Resolving]
  - Stasis dermatitis [Recovering/Resolving]
  - Hypoxia [Recovered/Resolved]
  - Hypocapnia [Recovered/Resolved]

NARRATIVE: CASE EVENT DATE: 20220127
